FAERS Safety Report 24550811 (Version 1)
Quarter: 2024Q4

REPORT INFORMATION
  Report Type: Spontaneous
  Country: US (occurrence: US)
  Receive Date: 20241025
  Receipt Date: 20241025
  Transmission Date: 20250114
  Serious: No
  Sender: NOVARTIS
  Company Number: US-002147023-NVSC2024US208195

PATIENT
  Sex: Male

DRUGS (1)
  1. PROMACTA [Suspect]
     Active Substance: ELTROMBOPAG OLAMINE
     Indication: Laboratory test abnormal
     Dosage: 75 MG, QD
     Route: 048
     Dates: start: 202406, end: 20240830

REACTIONS (2)
  - Laboratory test abnormal [Unknown]
  - Platelet count increased [Unknown]
